FAERS Safety Report 9995015 (Version 2)
Quarter: 2014Q2

REPORT INFORMATION
  Report Type: Spontaneous
  Country: CH (occurrence: None)
  Receive Date: 20140306
  Receipt Date: 20140422
  Transmission Date: 20141212
  Serious: Yes (Hospitalization)
  Sender: FDA-Public Use
  Company Number: 20140104

PATIENT
  Age: 36 Year
  Sex: Female

DRUGS (3)
  1. FERINJECT [Suspect]
     Indication: IRON DEFICIENCY ANAEMIA
     Dosage: 2 TOTAL
     Route: 041
     Dates: start: 20130930, end: 20131008
  2. GYNO-TARDYFERON [Concomitant]
  3. UNSPECIFIED ANTIBIOTIC [Concomitant]

REACTIONS (1)
  - Pulmonary embolism [None]
